FAERS Safety Report 6810228-9 (Version None)
Quarter: 2010Q2

REPORT INFORMATION
  Report Type: 
  Country: None (occurrence: None)
  Receive Date: 20100630
  Receipt Date: 20100618
  Transmission Date: 20101027
  Serious: Yes (Other)
  Sender: FDA-Public Use
  Company Number: FR-PFIZER INC-2010075677

PATIENT
  Age: 40 Year
  Sex: Female

DRUGS (4)
  1. XANAX [Suspect]
     Dosage: 0.25 MG, 1X/DAY
     Dates: start: 20080417
  2. DEROXAT [Interacting]
     Dosage: 1 DF, 1X/DAY
  3. AMITRIPTYLINE HCL [Interacting]
     Indication: DEPRESSION
     Dosage: 22 DF, 1X/DAY
  4. ALCOHOL [Interacting]
     Dosage: UNK

REACTIONS (4)
  - ALCOHOL INTERACTION [None]
  - AMNESIA [None]
  - BLOOD ALCOHOL INCREASED [None]
  - ROAD TRAFFIC ACCIDENT [None]
